FAERS Safety Report 20111940 (Version 2)
Quarter: 2021Q4

REPORT INFORMATION
  Report Type: Report from Study
  Country: JP (occurrence: JP)
  Receive Date: 20211125
  Receipt Date: 20211208
  Transmission Date: 20220304
  Serious: Yes (Other)
  Sender: FDA-Public Use
  Company Number: JP-SA-2021SA386923

PATIENT
  Age: 76 Year
  Sex: Female
  Weight: 35 kg

DRUGS (23)
  1. ISATUXIMAB [Suspect]
     Active Substance: ISATUXIMAB
     Indication: Plasma cell myeloma
     Dosage: 8.5 MG/KG, QOW
     Route: 041
     Dates: start: 20210506, end: 20210909
  2. ISATUXIMAB [Suspect]
     Active Substance: ISATUXIMAB
     Dosage: 8.5 MG/KG, QW
     Route: 041
     Dates: start: 20201015, end: 20201105
  3. ISATUXIMAB [Suspect]
     Active Substance: ISATUXIMAB
     Dosage: 8.5 MG/KG, QOW
     Route: 041
     Dates: start: 20201112, end: 20210415
  4. ISATUXIMAB [Suspect]
     Active Substance: ISATUXIMAB
     Dosage: 8.5 MG/KG, QOW
     Route: 041
     Dates: start: 20210930, end: 20211111
  5. POMALIDOMIDE [Suspect]
     Active Substance: POMALIDOMIDE
     Indication: Plasma cell myeloma
     Dosage: DAILY DOSAGE: 4 MG
     Route: 065
     Dates: start: 20210701, end: 20210707
  6. POMALIDOMIDE [Suspect]
     Active Substance: POMALIDOMIDE
     Dosage: DAILY DOSAGE: 4 MG
     Route: 065
     Dates: start: 20201015, end: 20201021
  7. POMALIDOMIDE [Suspect]
     Active Substance: POMALIDOMIDE
     Dosage: DAILY DOSAGE: 4 MG
     Route: 065
     Dates: start: 20201112, end: 20201118
  8. POMALIDOMIDE [Suspect]
     Active Substance: POMALIDOMIDE
     Dosage: DAILY DOSAGE: 4 MG
     Route: 065
     Dates: start: 20201210, end: 20201216
  9. POMALIDOMIDE [Suspect]
     Active Substance: POMALIDOMIDE
     Dosage: DAILY DOSAGE: 4 MG
     Route: 065
     Dates: start: 20210107, end: 20210113
  10. POMALIDOMIDE [Suspect]
     Active Substance: POMALIDOMIDE
     Dosage: DAILY DOSAGE: 4 MG
     Route: 065
     Dates: start: 20210204, end: 20210210
  11. POMALIDOMIDE [Suspect]
     Active Substance: POMALIDOMIDE
     Dosage: DAILY DOSAGE: 4 MG
     Route: 065
     Dates: start: 20210304, end: 20210310
  12. POMALIDOMIDE [Suspect]
     Active Substance: POMALIDOMIDE
     Dosage: DAILY DOSAGE: 4 MG
     Route: 065
     Dates: start: 20210401, end: 20210407
  13. POMALIDOMIDE [Suspect]
     Active Substance: POMALIDOMIDE
     Dosage: DAILY DOSAGE: 4 MG
     Route: 065
     Dates: start: 20210506, end: 20210512
  14. POMALIDOMIDE [Suspect]
     Active Substance: POMALIDOMIDE
     Dosage: DAILY DOSAGE: 4 MG
     Route: 065
     Dates: start: 20210603, end: 20210609
  15. POMALIDOMIDE [Suspect]
     Active Substance: POMALIDOMIDE
     Dosage: DAILY DOSAGE: 4 MG
     Route: 065
     Dates: start: 20210729, end: 20210804
  16. POMALIDOMIDE [Suspect]
     Active Substance: POMALIDOMIDE
     Dosage: DAILY DOSAGE: 4 MG
     Route: 065
     Dates: start: 20210826, end: 20210901
  17. POMALIDOMIDE [Suspect]
     Active Substance: POMALIDOMIDE
     Dosage: DAILY DOSAGE: 4 MG
     Route: 065
     Dates: start: 20210930, end: 20211006
  18. POMALIDOMIDE [Suspect]
     Active Substance: POMALIDOMIDE
     Dosage: DAILY DOSAGE: 4 MG
     Route: 065
     Dates: start: 20211028, end: 20211103
  19. DEXAMETHASONE [Concomitant]
     Active Substance: DEXAMETHASONE
     Indication: Plasma cell myeloma
     Dosage: 8 MG, QW
     Route: 065
     Dates: start: 20201015, end: 20201105
  20. DEXAMETHASONE [Concomitant]
     Active Substance: DEXAMETHASONE
     Dosage: 8 MG, QOW
     Route: 065
     Dates: start: 20201112, end: 20210415
  21. DEXAMETHASONE [Concomitant]
     Active Substance: DEXAMETHASONE
     Dosage: 8 MG, QOW
     Route: 065
     Dates: start: 20210506, end: 20210909
  22. DEXAMETHASONE [Concomitant]
     Active Substance: DEXAMETHASONE
     Dosage: 8 MG, QOW
     Route: 065
     Dates: start: 20210930, end: 20211111
  23. ZOLEDRONIC ACID [Concomitant]
     Active Substance: ZOLEDRONIC ACID
     Indication: Plasma cell myeloma
     Dosage: DAILY DOSAGE: 3 MG
     Route: 065
     Dates: start: 20200311

REACTIONS (3)
  - Dermatitis exfoliative generalised [Recovering/Resolving]
  - Pruritus [Recovering/Resolving]
  - Erythema [Recovering/Resolving]

NARRATIVE: CASE EVENT DATE: 20210703
